FAERS Safety Report 10078635 (Version 1)
Quarter: 2014Q2

REPORT INFORMATION
  Report Type: Spontaneous
  Country: US (occurrence: None)
  Receive Date: 20140414
  Receipt Date: 20140414
  Transmission Date: 20141212
  Serious: Yes (Other)
  Sender: FDA-Public Use
  Company Number: None

PATIENT
  Age: 45 Year
  Sex: Female

DRUGS (1)
  1. COPAXONE [Suspect]
     Route: 058
     Dates: start: 20140326

REACTIONS (5)
  - Weight increased [None]
  - Abdominal pain upper [None]
  - Burning sensation [None]
  - Hiccups [None]
  - Diarrhoea [None]
